FAERS Safety Report 5913138-4 (Version None)
Quarter: 2008Q4

REPORT INFORMATION
  Report Type: 
  Country: None (occurrence: None)
  Receive Date: 20081009
  Receipt Date: 20080926
  Transmission Date: 20090506
  Serious: Yes (Hospitalization, Other)
  Sender: FDA-Public Use
  Company Number: US-BAYER-200834451NA

PATIENT
  Age: 52 Year
  Sex: Female

DRUGS (3)
  1. BETASERON [Suspect]
     Indication: RELAPSING-REMITTING MULTIPLE SCLEROSIS
     Dosage: TOTAL DAILY DOSE: 8 MIU
     Route: 058
     Dates: start: 19971105, end: 20040115
  2. ACTONEL [Concomitant]
  3. PROZAC [Concomitant]
     Indication: DEPRESSION
     Dates: start: 19890101

REACTIONS (7)
  - COMA [None]
  - DEEP VEIN THROMBOSIS [None]
  - DEPRESSION [None]
  - FRACTURE [None]
  - MULTIPLE SCLEROSIS [None]
  - PNEUMONIA [None]
  - TRIGEMINAL NEURALGIA [None]
